FAERS Safety Report 9098530 (Version 1)
Quarter: 2013Q1

REPORT INFORMATION
  Report Type: Spontaneous
  Country: US (occurrence: US)
  Receive Date: 20130213
  Receipt Date: 20130213
  Transmission Date: 20140127
  Serious: Yes (Death, Other)
  Sender: FDA-Public Use
  Company Number: US-PFIZER INC-2013057005

PATIENT
  Sex: 0

DRUGS (1)
  1. ZYVOX [Suspect]
     Dosage: 600 MG, UNK

REACTIONS (3)
  - Lactic acidosis [Fatal]
  - Hepatic cirrhosis [Fatal]
  - Renal impairment [Fatal]
